FAERS Safety Report 6565323-9 (Version None)
Quarter: 2010Q1

REPORT INFORMATION
  Report Type: 
  Country: None (occurrence: None)
  Receive Date: 20100201
  Receipt Date: 20100129
  Transmission Date: 20100710
  Serious: Yes (Death, Hospitalization)
  Sender: FDA-Public Use
  Company Number: CH-ROCHE-682464

PATIENT
  Sex: Male
  Weight: 64 kg

DRUGS (10)
  1. METHOXY POLYETHYLENE GLYCOL-EPOETIN BETA [Suspect]
     Route: 058
     Dates: start: 20081101
  2. TORASEMIDE [Suspect]
     Indication: DRUG USE FOR UNKNOWN INDICATION
     Route: 048
     Dates: start: 20080601
  3. SULFAMETHOXAZOLE AND TRIMETHOPRIM [Suspect]
     Indication: PNEUMONIA
     Route: 048
     Dates: start: 20080601
  4. BELOC-ZOK [Concomitant]
     Indication: CARDIAC DISORDER
     Route: 048
  5. ASPIRIN [Concomitant]
     Indication: CARDIAC DISORDER
     Route: 048
  6. NOVOMIX 30 [Concomitant]
     Dosage: DOSE: 32 UNIT.
     Route: 058
     Dates: start: 20080101
  7. PREDNISONE [Concomitant]
     Route: 048
  8. IMUREK [Concomitant]
     Route: 048
  9. PANTOPRAZOLE [Concomitant]
     Indication: PROPHYLAXIS
     Route: 048
  10. AVELOX [Concomitant]
     Route: 048
     Dates: start: 20090709

REACTIONS (2)
  - PNEUMONIA [None]
  - PULMONARY EMBOLISM [None]
